FAERS Safety Report 20064306 (Version 1)
Quarter: 2021Q4

REPORT INFORMATION
  Report Type: Spontaneous
  Country: FR (occurrence: FR)
  Receive Date: 20211112
  Receipt Date: 20211112
  Transmission Date: 20220303
  Serious: Yes (Hospitalization, Other)
  Sender: FDA-Public Use
  Company Number: None

PATIENT
  Age: 57 Year
  Sex: Male
  Weight: 71 kg

DRUGS (4)
  1. DIAZEPAM [Suspect]
     Active Substance: DIAZEPAM
     Indication: Product used for unknown indication
     Dosage: UNKNOWN,THERAPY START DATE:NOT ASKED
     Route: 065
     Dates: end: 202106
  2. SUBUTEX [Suspect]
     Active Substance: BUPRENORPHINE HYDROCHLORIDE
     Indication: Product substitution
     Dosage: 8MILLIGRAM,THERAPY START DATE:NOT ASKED
     Route: 048
  3. COCAINE [Suspect]
     Active Substance: COCAINE
     Dosage: UNKNOWN,THERAPY START DATE:NOT ASKED
     Route: 065
     Dates: end: 202106
  4. CANRENONE [Suspect]
     Active Substance: CANRENONE
     Indication: Product used for unknown indication
     Dosage: UNKNOWN,THERAPY START DATE:NOT ASKED
     Route: 065

REACTIONS (5)
  - Agitation [Recovered/Resolved]
  - Altered state of consciousness [Recovered/Resolved]
  - Hypotension [Recovered/Resolved]
  - Metabolic encephalopathy [Recovered/Resolved]
  - Drug abuse [Recovering/Resolving]

NARRATIVE: CASE EVENT DATE: 20210601
